FAERS Safety Report 7231376-8 (Version None)
Quarter: 2011Q1

REPORT INFORMATION
  Report Type: 
  Country: None (occurrence: None)
  Receive Date: 20110118
  Receipt Date: 20110105
  Transmission Date: 20110831
  Serious: Yes (Hospitalization, Disabling)
  Sender: FDA-Public Use
  Company Number: US-MERCK-1004USA03269

PATIENT
  Age: 65 Year
  Sex: Female
  Weight: 78 kg

DRUGS (1)
  1. FOSAMAX [Suspect]
     Indication: OSTEOPOROSIS
     Route: 048
     Dates: start: 20011126, end: 20070501

REACTIONS (72)
  - SUBCUTANEOUS ABSCESS [None]
  - ANAL SKIN TAGS [None]
  - ANKLE FRACTURE [None]
  - BACK PAIN [None]
  - HEADACHE [None]
  - MERALGIA PARAESTHETICA [None]
  - VAGINITIS BACTERIAL [None]
  - UTERINE PROLAPSE [None]
  - PLANTAR FASCIITIS [None]
  - ASTHENIA [None]
  - DYSHIDROSIS [None]
  - DIABETES MELLITUS INADEQUATE CONTROL [None]
  - DERMATITIS [None]
  - OSTEONECROSIS OF JAW [None]
  - CHEST PAIN [None]
  - OEDEMA PERIPHERAL [None]
  - HAEMORRHOIDS [None]
  - FLANK PAIN [None]
  - JOINT SWELLING [None]
  - LIP SWELLING [None]
  - CATARACT [None]
  - DENTAL CARIES [None]
  - CYSTOCELE [None]
  - COLONIC POLYP [None]
  - ANXIETY DISORDER [None]
  - FEELING JITTERY [None]
  - MYALGIA [None]
  - LOOSE TOOTH [None]
  - FUNGAL INFECTION [None]
  - OSTEOARTHRITIS [None]
  - ABDOMINAL PAIN [None]
  - DRUG HYPERSENSITIVITY [None]
  - EXOSTOSIS [None]
  - NEUROPATHY PERIPHERAL [None]
  - VISUAL IMPAIRMENT [None]
  - PSORIASIS [None]
  - COUGH [None]
  - BURSITIS [None]
  - FALL [None]
  - TOOTH FRACTURE [None]
  - SLEEP DISORDER [None]
  - WEIGHT INCREASED [None]
  - SENSITIVITY OF TEETH [None]
  - JOINT SPRAIN [None]
  - DYSPHONIA [None]
  - DYSARTHRIA [None]
  - DIABETIC NEUROPATHY [None]
  - CHEST DISCOMFORT [None]
  - ADVERSE DRUG REACTION [None]
  - AORTIC ARTERIOSCLEROSIS [None]
  - HEPATIC STEATOSIS [None]
  - NECK PAIN [None]
  - MENIERE'S DISEASE [None]
  - URINARY TRACT INFECTION [None]
  - TOOTHACHE [None]
  - LIVER FUNCTION TEST ABNORMAL [None]
  - DYSPHAGIA [None]
  - DEPRESSION [None]
  - BREAST MASS [None]
  - FIBULA FRACTURE [None]
  - ORAL DISORDER [None]
  - ONYCHOMYCOSIS [None]
  - TOOTH DISORDER [None]
  - MUSCULOSKELETAL PAIN [None]
  - PERIODONTITIS [None]
  - HIATUS HERNIA [None]
  - VERTIGO POSITIONAL [None]
  - GINGIVAL DISORDER [None]
  - FATIGUE [None]
  - TEMPOROMANDIBULAR JOINT SYNDROME [None]
  - SKIN LESION [None]
  - RENAL CYST [None]
